FAERS Safety Report 4445890-1 (Version None)
Quarter: 2004Q3

REPORT INFORMATION
  Report Type: 
  Country: None (occurrence: None)
  Receive Date: 20040908
  Receipt Date: 20040908
  Transmission Date: 20050211
  Serious: Yes (Hospitalization)
  Sender: FDA-Public Use
  Company Number: None

PATIENT
  Age: 48 Year
  Sex: Male

DRUGS (6)
  1. WARFARIN SODIUM [Suspect]
     Indication: DEEP VEIN THROMBOSIS
     Dosage: 10 MG QD
     Dates: start: 20031001
  2. CLOPIDOGREL [Suspect]
     Indication: CEREBROVASCULAR ACCIDENT
     Dosage: 75 MG QD
     Dates: start: 20040514
  3. ZOCOR [Concomitant]
  4. HYDROCHLOROTHIAZIDE [Concomitant]
  5. VERAPAMIL [Concomitant]
  6. ACIPHEX [Concomitant]

REACTIONS (1)
  - HAEMATURIA [None]
